FAERS Safety Report 18820344 (Version 2)
Quarter: 2021Q1

REPORT INFORMATION
  Report Type: Spontaneous
  Country: US (occurrence: US)
  Receive Date: 20210202
  Receipt Date: 20210309
  Transmission Date: 20210419
  Serious: Yes (Other)
  Sender: FDA-Public Use
  Company Number: US-ASTRAZENECA-2021A017804

PATIENT
  Age: 65 Year
  Sex: Female
  Weight: 104.3 kg

DRUGS (17)
  1. METFORMIN [Concomitant]
     Active Substance: METFORMIN HYDROCHLORIDE
  2. FISH OIL OTC [Concomitant]
  3. LOSARTAN. [Concomitant]
     Active Substance: LOSARTAN
     Indication: RENAL IMPAIRMENT
  4. ZINC. [Concomitant]
     Active Substance: ZINC
     Indication: TASTE DISORDER
     Dosage: 50 BID
     Dates: start: 202012
  5. TYLENOL EXTRA STRENGTH [Concomitant]
     Active Substance: ACETAMINOPHEN
     Indication: SPONDYLITIS
     Dosage: AS REQUIRED
  6. GLYPIZIDE [Concomitant]
     Active Substance: GLIPIZIDE
  7. B50 OTC [Concomitant]
     Indication: NEUROPATHY PERIPHERAL
     Dosage: DAILY
     Route: 048
     Dates: start: 2002
  8. ATORVASTATIN [Concomitant]
     Active Substance: ATORVASTATIN
  9. CLINDAMYCIN. [Concomitant]
     Active Substance: CLINDAMYCIN
     Indication: FURUNCLE
     Dates: start: 2016
  10. BYDUREON [Suspect]
     Active Substance: EXENATIDE
     Indication: DIABETES MELLITUS
     Route: 058
     Dates: start: 202010
  11. ESTADIOL [Concomitant]
  12. LEVOTHYROXIN [Concomitant]
     Active Substance: LEVOTHYROXINE
     Indication: THYROIDECTOMY
     Dosage: 150 MG, 1 PILL MONDAY TO SATURDAY AND A HALF OF A PILL ON SUNDAY
     Dates: start: 202011
  13. OMEPRAZOLE. [Suspect]
     Active Substance: OMEPRAZOLE
     Indication: DYSPEPSIA
     Dosage: 40.0MG AS REQUIRED
     Route: 048
  14. ZINC. [Concomitant]
     Active Substance: ZINC
     Indication: TASTE DISORDER
     Dates: start: 202006, end: 202012
  15. CALCIUM D [Concomitant]
     Active Substance: CALCIUM\VITAMIN D
  16. MULTIVITAMINS [Concomitant]
     Active Substance: VITAMINS
     Dosage: DAILY
  17. TYLENOL EXTRA STRENGTH [Concomitant]
     Active Substance: ACETAMINOPHEN
     Indication: ARTHRITIS
     Dosage: AS REQUIRED

REACTIONS (9)
  - Injection site mass [Not Recovered/Not Resolved]
  - Injection site haemorrhage [Unknown]
  - Weight decreased [Unknown]
  - Device mechanical issue [Unknown]
  - Thyroiditis [Unknown]
  - Thyroid cancer [Unknown]
  - Suspected COVID-19 [Unknown]
  - Neck pain [Recovered/Resolved]
  - Drug dose omission by device [Unknown]

NARRATIVE: CASE EVENT DATE: 2020
